FAERS Safety Report 23812436 (Version 1)
Quarter: 2024Q2

REPORT INFORMATION
  Report Type: Spontaneous
  Country: IT (occurrence: IT)
  Receive Date: 20240503
  Receipt Date: 20240503
  Transmission Date: 20240716
  Serious: Yes (Other)
  Sender: FDA-Public Use
  Company Number: IT-ROCHE-3528585

PATIENT
  Age: 70 Year
  Sex: Male

DRUGS (12)
  1. DOXORUBICIN [Suspect]
     Active Substance: DOXORUBICIN
     Indication: Chronic lymphocytic leukaemia
     Dosage: UNK
     Route: 065
     Dates: start: 20230302
  2. GEMCITABINE [Suspect]
     Active Substance: GEMCITABINE
     Indication: Chronic lymphocytic leukaemia
     Dosage: UNK
     Route: 065
     Dates: start: 20230811
  3. OXALIPLATIN [Suspect]
     Active Substance: OXALIPLATIN
     Indication: Chronic lymphocytic leukaemia
     Dosage: UNK
     Route: 065
     Dates: start: 20230811
  4. CYCLOPHOSPHAMIDE [Suspect]
     Active Substance: CYCLOPHOSPHAMIDE
     Indication: Chronic lymphocytic leukaemia
     Dosage: UNK
     Route: 065
     Dates: start: 20230302
  5. CYTARABINE [Suspect]
     Active Substance: CYTARABINE
     Indication: Chronic lymphocytic leukaemia
     Dosage: UNK
     Route: 065
     Dates: start: 20231113
  6. DEXAMETHASONE [Suspect]
     Active Substance: DEXAMETHASONE
     Indication: Chronic lymphocytic leukaemia
     Dosage: UNK
     Route: 065
     Dates: start: 20231113
  7. FLUDARABINE [Suspect]
     Active Substance: FLUDARABINE PHOSPHATE
     Indication: Chronic lymphocytic leukaemia
     Dosage: UNK
     Route: 065
     Dates: start: 20180312
  8. IBRUTINIB [Suspect]
     Active Substance: IBRUTINIB
     Indication: Chronic lymphocytic leukaemia
     Dosage: UNK
     Route: 065
     Dates: start: 20220127
  9. PREDNISONE [Suspect]
     Active Substance: PREDNISONE
     Indication: Chronic lymphocytic leukaemia
     Dosage: UNK
     Route: 065
     Dates: start: 20230302
  10. RITUXIMAB [Suspect]
     Active Substance: RITUXIMAB
     Indication: Chronic lymphocytic leukaemia
     Dosage: UNK
     Route: 065
     Dates: start: 20180312, end: 20180801
  11. RITUXIMAB [Suspect]
     Active Substance: RITUXIMAB
     Dosage: UNK
     Route: 065
     Dates: start: 20230302
  12. VINCRISTINE [Suspect]
     Active Substance: VINCRISTINE
     Indication: Chronic lymphocytic leukaemia
     Dosage: UNK
     Route: 065
     Dates: start: 20230302

REACTIONS (3)
  - Chronic lymphocytic leukaemia [Unknown]
  - Disease progression [Unknown]
  - Off label use [Unknown]
